FAERS Safety Report 14137315 (Version 3)
Quarter: 2017Q4

REPORT INFORMATION
  Report Type: Spontaneous
  Country: US (occurrence: US)
  Receive Date: 20171027
  Receipt Date: 20171218
  Transmission Date: 20180321
  Serious: Yes (Other)
  Sender: FDA-Public Use
  Company Number: US-ASTELLAS-2017US043221

PATIENT
  Age: 73 Year
  Sex: Male

DRUGS (1)
  1. XTANDI [Suspect]
     Active Substance: ENZALUTAMIDE
     Indication: PRODUCT USED FOR UNKNOWN INDICATION
     Route: 065
     Dates: start: 20171002

REACTIONS (5)
  - Red blood cell count decreased [Recovering/Resolving]
  - Insomnia [Recovered/Resolved]
  - Fatigue [Unknown]
  - Stress [Unknown]
  - Somnolence [Unknown]

NARRATIVE: CASE EVENT DATE: 201710
